FAERS Safety Report 19752870 (Version 3)
Quarter: 2022Q1

REPORT INFORMATION
  Report Type: Spontaneous
  Country: KR (occurrence: KR)
  Receive Date: 20210826
  Receipt Date: 20220127
  Transmission Date: 20220423
  Serious: Yes (Other)
  Sender: FDA-Public Use
  Company Number: NVSC2021KR191212

PATIENT
  Age: 69 Year
  Sex: Male

DRUGS (2)
  1. BEOVU [Suspect]
     Active Substance: BROLUCIZUMAB-DBLL
     Indication: Retinal neovascularisation
     Dosage: UNK (LEFT EYE)
     Route: 065
  2. AFLIBERCEPT [Concomitant]
     Active Substance: AFLIBERCEPT
     Indication: Product used for unknown indication
     Dosage: UNK UNK, QMO (3 INJECTIONS 1 MONTH INTERVAL)
     Route: 065

REACTIONS (2)
  - Detachment of retinal pigment epithelium [Unknown]
  - Concomitant disease aggravated [Unknown]
